FAERS Safety Report 24240888 (Version 2)
Quarter: 2024Q3

REPORT INFORMATION
  Report Type: Spontaneous
  Country: JP (occurrence: JP)
  Receive Date: 20240823
  Receipt Date: 20240924
  Transmission Date: 20241016
  Serious: Yes (Death, Hospitalization)
  Sender: CHEPLAPHARM
  Company Number: JP-CHEPLA-2024010744

PATIENT
  Age: 9 Decade
  Sex: Male

DRUGS (4)
  1. GANCICLOVIR [Suspect]
     Active Substance: GANCICLOVIR
     Indication: Cytomegalovirus enterocolitis
     Dosage: IV DRIP
     Route: 042
  2. REMICADE [Suspect]
     Active Substance: INFLIXIMAB
     Indication: Colitis ulcerative
     Dosage: IV DRIP
     Route: 042
  3. STELARA [Suspect]
     Active Substance: USTEKINUMAB
     Indication: Colitis ulcerative
  4. PREDNISOLONE [Concomitant]
     Active Substance: PREDNISOLONE

REACTIONS (2)
  - Endocarditis [Fatal]
  - Device related infection [Unknown]
